FAERS Safety Report 6309420-1 (Version None)
Quarter: 2009Q3

REPORT INFORMATION
  Report Type: 
  Country: None (occurrence: None)
  Receive Date: 20090811
  Receipt Date: 20090526
  Transmission Date: 20100115
  Serious: No
  Sender: FDA-Public Use
  Company Number: 1000006466

PATIENT
  Age: 58 Year
  Sex: Female

DRUGS (3)
  1. SAVELLA [Suspect]
     Indication: FIBROMYALGIA
     Dosage: 12.5 MG (12.5 MG,1 IN 1 D),ORAL; 12.5 MG (12.5 MG, 2 IN 2 D),ORAL
     Route: 048
     Dates: start: 20090518, end: 20090518
  2. SAVELLA [Suspect]
     Indication: FIBROMYALGIA
     Dosage: 12.5 MG (12.5 MG,1 IN 1 D),ORAL; 12.5 MG (12.5 MG, 2 IN 2 D),ORAL
     Route: 048
     Dates: start: 20090519, end: 20090520
  3. SAVELLA [Suspect]
     Indication: FIBROMYALGIA
     Dosage: 50 MG (25 MG, 2 IN 1 D), ORAL
     Route: 048
     Dates: start: 20090521, end: 20090524

REACTIONS (5)
  - CRYING [None]
  - DIZZINESS [None]
  - HEART RATE INCREASED [None]
  - NAUSEA [None]
  - TINNITUS [None]
